FAERS Safety Report 6702827-X (Version None)
Quarter: 2010Q2

REPORT INFORMATION
  Report Type: 
  Country: None (occurrence: None)
  Receive Date: 20100429
  Receipt Date: 20100421
  Transmission Date: 20101027
  Serious: Yes (Death)
  Sender: FDA-Public Use
  Company Number: JP-WYE-H12864210

PATIENT
  Age: 82 Year
  Sex: Female

DRUGS (3)
  1. ZOSYN [Suspect]
     Route: 042
     Dates: start: 20091227, end: 20091228
  2. ANTITHROMBIN III [Concomitant]
     Dosage: UNKNOWN
     Route: 042
  3. CEFTRIAXONE [Suspect]
     Dosage: UNKNOWN
     Route: 042
     Dates: end: 20091201

REACTIONS (4)
  - CONDITION AGGRAVATED [None]
  - DISSEMINATED INTRAVASCULAR COAGULATION [None]
  - MULTI-ORGAN FAILURE [None]
  - PLATELET COUNT DECREASED [None]
